FAERS Safety Report 8081483-5 (Version None)
Quarter: 2012Q1

REPORT INFORMATION
  Report Type: 
  Country: None (occurrence: None)
  Receive Date: 20120130
  Receipt Date: 20120119
  Transmission Date: 20120608
  Serious: Yes (Other)
  Sender: FDA-Public Use
  Company Number: PHEH2012US001814

PATIENT
  Age: 61 Year
  Sex: Female

DRUGS (1)
  1. IMATINIB MESYLATE [Suspect]

REACTIONS (1)
  - HAEMATOTOXICITY [None]
